FAERS Safety Report 19756235 (Version 2)
Quarter: 2021Q3

REPORT INFORMATION
  Report Type: Spontaneous
  Country: US (occurrence: US)
  Receive Date: 20210827
  Receipt Date: 20210907
  Transmission Date: 20211014
  Serious: No
  Sender: FDA-Public Use
  Company Number: US-AMGEN-USASP2021132264

PATIENT
  Age: 65 Year
  Sex: Female

DRUGS (16)
  1. CYANOCOBALAMIN. [Concomitant]
     Active Substance: CYANOCOBALAMIN
  2. ALBUTEROL SULFATE HFA [Concomitant]
     Active Substance: ALBUTEROL SULFATE
  3. LEVOTHYROXINE SODIUM. [Concomitant]
     Active Substance: LEVOTHYROXINE SODIUM
  4. FOLVITE [FOLIC ACID] [Concomitant]
  5. NEURONTIN [Concomitant]
     Active Substance: GABAPENTIN
  6. ZOFRAN [Concomitant]
     Active Substance: ONDANSETRON HYDROCHLORIDE
  7. DECADRON [Concomitant]
     Active Substance: DEXAMETHASONE
  8. PREDNISONE. [Concomitant]
     Active Substance: PREDNISONE
  9. FLONASE [MOMETASONE FUROATE] [Concomitant]
     Active Substance: MOMETASONE FUROATE
  10. HYDROCORTISONE. [Concomitant]
     Active Substance: HYDROCORTISONE
  11. PEPCID [Concomitant]
     Active Substance: FAMOTIDINE
  12. TYLENOL [Concomitant]
     Active Substance: ACETAMINOPHEN
  13. PRILOSEC [Concomitant]
     Active Substance: OMEPRAZOLE MAGNESIUM
  14. LUMAKRAS [Suspect]
     Active Substance: SOTORASIB
     Indication: LUNG NEOPLASM MALIGNANT
     Dosage: 960 MILLIGRAM, QD
     Route: 048
     Dates: start: 202106
  15. MAXITROL [Concomitant]
     Active Substance: DEXAMETHASONE\NEOMYCIN SULFATE\POLYMYXIN B SULFATE
  16. ALPRAZOLAM. [Concomitant]
     Active Substance: ALPRAZOLAM

REACTIONS (2)
  - Eye operation [Unknown]
  - Diarrhoea [Recovered/Resolved]

NARRATIVE: CASE EVENT DATE: 2021
